FAERS Safety Report 7721139-9 (Version None)
Quarter: 2011Q3

REPORT INFORMATION
  Report Type: 
  Country: None (occurrence: None)
  Receive Date: 20110825
  Receipt Date: 20110815
  Transmission Date: 20111222
  Serious: No
  Sender: FDA-Public Use
  Company Number: 15690894

PATIENT
  Age: 28 Year
  Sex: Male

DRUGS (4)
  1. APIXABAN [Suspect]
     Indication: EMBOLISM
     Dosage: 10 MILLIGRAM 1 DAY ORAL
     Route: 048
     Dates: start: 20110301
  2. WARFARIN SODIUM [Suspect]
     Indication: EMBOLISM
     Dosage: ORAL
     Route: 048
     Dates: start: 20110222
  3. ENOXAPARIN SODIUM [Suspect]
     Indication: EMBOLISM
     Dosage: 140 MILLIGRAM 1 DAY SC
     Route: 058
     Dates: start: 20110222, end: 20110301
  4. PLACEBO [Suspect]
     Indication: EMBOLISM
     Dosage: ORAL
     Route: 048
     Dates: start: 20110222

REACTIONS (1)
  - OVERDOSE [None]
